FAERS Safety Report 9245924 (Version 6)
Quarter: 2014Q2

REPORT INFORMATION
  Report Type: Spontaneous
  Country: US (occurrence: US)
  Receive Date: 20130422
  Receipt Date: 20140527
  Transmission Date: 20141212
  Serious: Yes (Death, Other)
  Sender: FDA-Public Use
  Company Number: US-JNJFOC-20130407401

PATIENT
  Age: 83 Year
  Sex: Female
  Weight: 58.1 kg

DRUGS (8)
  1. REMICADE [Suspect]
     Indication: CROHN^S DISEASE
     Dosage: 3 INFUSIONS, 0.2-6 WEEKS
     Route: 042
     Dates: start: 20001121, end: 20010103
  2. AZATHIOPRINE [Suspect]
     Indication: PRODUCT USED FOR UNKNOWN INDICATION
     Route: 065
     Dates: start: 20001121, end: 20050613
  3. SINEMET [Concomitant]
     Indication: RESTLESS LEGS SYNDROME
     Dosage: 1 TABLET, EVERY 4 HOURS
     Route: 065
     Dates: start: 1995, end: 20050518
  4. INDOMETHACIN [Concomitant]
     Indication: GOUT
     Dosage: 1-3 TIMES DAILY??THE THERAPY DATES WERE 1990S-2009.
     Route: 065
  5. DYAZIDE [Concomitant]
     Indication: HYPERTENSION
     Route: 065
     Dates: start: 19800214, end: 2005
  6. PENTASA [Concomitant]
     Indication: CROHN^S DISEASE
     Route: 065
     Dates: start: 19941017, end: 20001121
  7. TRIAMCINOLONE CREAM [Concomitant]
     Indication: SKIN LESION
     Dosage: DAILY
     Route: 065
     Dates: start: 20000515, end: 20001231
  8. SYNALAR CREAM [Concomitant]
     Indication: SKIN LESION
     Dosage: DAILY
     Route: 065
     Dates: start: 20000515, end: 20001231

REACTIONS (3)
  - Tonsil cancer [Unknown]
  - Hypopharyngeal cancer [Unknown]
  - Death [Fatal]
